FAERS Safety Report 7996057-1 (Version None)
Quarter: 2011Q4

REPORT INFORMATION
  Report Type: 
  Country: None (occurrence: None)
  Receive Date: 20111220
  Receipt Date: 20111208
  Transmission Date: 20120403
  Serious: Yes (Other)
  Sender: FDA-Public Use
  Company Number: PHEH2011US011169

PATIENT
  Age: 70 Year
  Sex: Female

DRUGS (9)
  1. LISINOPRIL [Concomitant]
     Dosage: 40 MG, UNK
  2. FENOFIBRATE [Concomitant]
     Dosage: 160 MG, UNK
  3. HYDROCHLOROTHIAZIDE [Concomitant]
     Dosage: 25 MG, UNK
  4. METOPROLOL SUCCINATE [Concomitant]
     Dosage: 25 MG, UNK
  5. VITAMIN D [Concomitant]
     Dosage: 50000 IU, UNK
  6. ESTRACE [Concomitant]
     Dosage: 0.1 MG, UNK
  7. OXAPROZIN [Concomitant]
  8. TEKTURNA HCT [Suspect]
     Dosage: 1 DF, QD
  9. SERTRALINE HYDROCHLORIDE [Concomitant]
     Dosage: 50 MG, UNK

REACTIONS (5)
  - MOOD ALTERED [None]
  - MENTAL STATUS CHANGES [None]
  - CRYING [None]
  - UMBILICAL HERNIA [None]
  - DEPRESSION [None]
